FAERS Safety Report 8760524 (Version 3)
Quarter: 2012Q4

REPORT INFORMATION
  Report Type: Spontaneous
  Country: US (occurrence: None)
  Receive Date: 20120822
  Receipt Date: 20121009
  Transmission Date: 20130627
  Serious: Yes (Hospitalization)
  Sender: FDA-Public Use
  Company Number: 2012SGN00355

PATIENT
  Age: 51 Year
  Sex: Female
  Weight: 83.4 kg

DRUGS (9)
  1. BRENTUXIMAB VEDOTIN [Suspect]
     Indication: HODGKIN^S LYMPHOMA
     Dates: start: 20120515, end: 20120726
  2. ADRIAMYCIN [Suspect]
     Indication: HODGKIN^S LYMPHOMA
     Dates: start: 20120612, end: 20120726
  3. VINBLASTINE [Suspect]
     Indication: HODGKIN^S LYMPHOMA
     Dates: start: 20120612, end: 20120726
  4. DACARBAZINE [Suspect]
     Indication: HODGKIN^S LYMPHOMA
     Dates: start: 20120612, end: 20120726
  5. CITALOPRAM [Concomitant]
  6. CYANOCOBALAMIN (CYANOCOBALAMIN) [Concomitant]
  7. LISINOPRIL (LISINOPRIL DIHYDRATE) [Concomitant]
  8. MORPHINE (MORPHINE HYDROCHLORIDE) [Concomitant]
  9. NEUPOGEN (FILGRASTIM) [Concomitant]

REACTIONS (12)
  - Febrile neutropenia [None]
  - Nausea [None]
  - Vomiting [None]
  - Decreased appetite [None]
  - Oesophagitis [None]
  - Transaminases increased [None]
  - White blood cell count decreased [None]
  - Dehydration [None]
  - Abdominal pain [None]
  - Fatigue [None]
  - Neutrophil count increased [None]
  - Ileus [None]
